FAERS Safety Report 10182797 (Version 1)
Quarter: 2014Q2

REPORT INFORMATION
  Report Type: Spontaneous
  Country: US (occurrence: US)
  Receive Date: 20140520
  Receipt Date: 20140520
  Transmission Date: 20141212
  Serious: Yes (Hospitalization)
  Sender: FDA-Public Use
  Company Number: US-B.I. PHARMACEUTICALS,INC./RIDGEFIELD-2014-BI-21446BP

PATIENT
  Age: 71 Year
  Sex: Male

DRUGS (13)
  1. PRADAXA [Suspect]
     Indication: CEREBROVASCULAR ACCIDENT PROPHYLAXIS
     Dosage: 300 MG
     Route: 048
  2. PRADAXA [Suspect]
     Indication: ATRIAL FIBRILLATION
  3. METOPROLOL [Concomitant]
     Route: 065
  4. LASIX [Concomitant]
     Route: 065
  5. ISOSORBIDE [Concomitant]
     Route: 065
  6. JANUVIA [Concomitant]
     Route: 065
  7. LIPITOR [Concomitant]
     Route: 065
  8. POTASSIUM [Concomitant]
     Route: 065
  9. INSULIN [Concomitant]
     Route: 065
  10. ASPIRIN [Concomitant]
     Route: 065
  11. DIGOXIN [Concomitant]
     Route: 065
  12. LISINOPRIL [Concomitant]
     Route: 065
  13. ALLOPURINOL [Concomitant]
     Route: 065

REACTIONS (1)
  - Arterial haemorrhage [Recovered/Resolved]
